FAERS Safety Report 4296530-6 (Version None)
Quarter: 2004Q1

REPORT INFORMATION
  Report Type: 
  Country: None (occurrence: None)
  Receive Date: 20040126
  Receipt Date: 20031030
  Transmission Date: 20041129
  Serious: No
  Sender: FDA-Public Use
  Company Number: USA030844452

PATIENT
  Age: 38 Year
  Sex: Female
  Weight: 57 kg

DRUGS (2)
  1. STRATTERA [Suspect]
     Indication: ATTENTION DEFICIT/HYPERACTIVITY DISORDER
     Dosage: 54 MG/DAY
     Dates: start: 20030815
  2. EFFEXOR [Concomitant]

REACTIONS (4)
  - DRUG INEFFECTIVE [None]
  - FEELING JITTERY [None]
  - HEART RATE INCREASED [None]
  - MENISCUS LESION [None]
